FAERS Safety Report 9687944 (Version 2)
Quarter: 2013Q4

REPORT INFORMATION
  Report Type: Spontaneous
  Country: ES (occurrence: ES)
  Receive Date: 20131114
  Receipt Date: 20131114
  Transmission Date: 20140711
  Serious: Yes (Disabling, Other)
  Sender: FDA-Public Use
  Company Number: PHHY2013ES079650

PATIENT
  Sex: 0

DRUGS (1)
  1. TASIGNA [Suspect]
     Indication: CHRONIC MYELOID LEUKAEMIA
     Dosage: 400 MG, BID
     Route: 048
     Dates: start: 20110527

REACTIONS (4)
  - Intermittent claudication [Not Recovered/Not Resolved]
  - Peripheral arterial occlusive disease [Unknown]
  - Myocardial ischaemia [Unknown]
  - Tachycardia [Unknown]
